FAERS Safety Report 11779829 (Version 1)
Quarter: 2015Q4

REPORT INFORMATION
  Report Type: Spontaneous
  Country: JP (occurrence: JP)
  Receive Date: 20151125
  Receipt Date: 20151125
  Transmission Date: 20160304
  Serious: Yes (Hospitalization, Other)
  Sender: FDA-Public Use
  Company Number: JP-TEVA-611535ISR

PATIENT
  Age: 51 Year
  Sex: Female
  Weight: 75 kg

DRUGS (2)
  1. LEVOFLOXACIN. [Suspect]
     Active Substance: LEVOFLOXACIN
     Indication: BACTERIAL INFECTION
     Dosage: 500 MILLIGRAM DAILY; 2 DAYS BEFORE ADMISSION
     Route: 048
  2. CEFTRIAXONE. [Suspect]
     Active Substance: CEFTRIAXONE
     Route: 042

REACTIONS (2)
  - Candida endophthalmitis [Recovered/Resolved]
  - Systemic candida [Recovered/Resolved]
